FAERS Safety Report 7852274-2 (Version None)
Quarter: 2011Q4

REPORT INFORMATION
  Report Type: 
  Country: None (occurrence: None)
  Receive Date: 20111026
  Receipt Date: 20111012
  Transmission Date: 20120403
  Serious: Yes (Hospitalization)
  Sender: FDA-Public Use
  Company Number: US-ELI_LILLY_AND_COMPANY-US201012004972

PATIENT
  Sex: Female

DRUGS (17)
  1. FORTEO [Suspect]
     Dosage: 20 UG, QD
     Route: 058
     Dates: end: 20110324
  2. FORTEO [Suspect]
     Dosage: 20 UG, QD
     Route: 058
     Dates: start: 20110328
  3. FORTEO [Suspect]
     Dosage: 20 UG, QD
     Route: 058
  4. CALCIUM CARBONATE [Concomitant]
     Dosage: UNK, DAILY (1/D)
  5. EXFORGE [Concomitant]
     Dosage: 5 MG-160, QD
  6. FISH OIL [Concomitant]
     Dosage: 1000 MG, TID
  7. VITAMIN D [Concomitant]
     Dosage: 2000 U, QD
  8. FORTEO [Suspect]
     Dosage: 20 UG, QD
     Route: 058
  9. FORTEO [Suspect]
     Dosage: 20 UG, DAILY (1/D)
     Route: 058
  10. CALCIUM CARBONATE [Concomitant]
     Dosage: UNK, DAILY (1/D)
  11. FORTEO [Suspect]
     Indication: OSTEOPOROSIS
     Dosage: 20 UG, DAILY (1/D)
     Route: 058
     Dates: start: 20100728
  12. FORTEO [Suspect]
     Dosage: 20 UG, DAILY (1/D)
     Route: 058
  13. FORTEO [Suspect]
     Dosage: 20 UG, QD
     Route: 058
     Dates: start: 20100728
  14. CALCIUM CARBONATE [Concomitant]
     Dosage: 300 MG, QD
  15. CALCIUM CARBONATE [Concomitant]
     Dosage: 600 MG, QD
  16. ASPIRIN [Concomitant]
     Dosage: 325 MG, QD
  17. FLECAINIDE ACETATE [Concomitant]
     Dosage: 75 MG, BID

REACTIONS (26)
  - INNER EAR DISORDER [None]
  - FEELING ABNORMAL [None]
  - MOVEMENT DISORDER [None]
  - ARTHRITIS [None]
  - ASTHENIA [None]
  - HEAD INJURY [None]
  - MOTION SICKNESS [None]
  - BONE PAIN [None]
  - BALANCE DISORDER [None]
  - LIMB ASYMMETRY [None]
  - FALL [None]
  - MUSCULOSKELETAL STIFFNESS [None]
  - EYE DISORDER [None]
  - BACK PAIN [None]
  - PAIN IN EXTREMITY [None]
  - RASH MACULAR [None]
  - MUSCLE SPASMS [None]
  - MUSCULOSKELETAL PAIN [None]
  - PAIN [None]
  - ARTHRALGIA [None]
  - FATIGUE [None]
  - BLOOD CALCIUM INCREASED [None]
  - SCIATIC NERVE INJURY [None]
  - SPINAL DISORDER [None]
  - MUSCULOSKELETAL DISCOMFORT [None]
  - DIZZINESS [None]
